FAERS Safety Report 22929868 (Version 5)
Quarter: 2024Q1

REPORT INFORMATION
  Report Type: Spontaneous
  Country: US (occurrence: US)
  Receive Date: 20230911
  Receipt Date: 20240322
  Transmission Date: 20240410
  Serious: No
  Sender: FDA-Public Use
  Company Number: US-PFIZER INC-PV202300034946

PATIENT
  Age: 67 Year
  Sex: Female

DRUGS (1)
  1. IBRANCE [Suspect]
     Active Substance: PALBOCICLIB
     Dosage: TAKE 1 TABLET BY MOUTH DAILY
     Route: 048

REACTIONS (4)
  - Arthropod bite [Recovering/Resolving]
  - Eye swelling [Recovering/Resolving]
  - Confusional state [Unknown]
  - Product dose omission in error [Unknown]
